FAERS Safety Report 16367104 (Version 1)
Quarter: 2019Q2

REPORT INFORMATION
  Report Type: Spontaneous
  Country: US (occurrence: US)
  Receive Date: 20190529
  Receipt Date: 20190529
  Transmission Date: 20190711
  Serious: No
  Sender: FDA-Public Use
  Company Number: US-SA-2019SA141869

PATIENT
  Age: 57 Year
  Sex: Female

DRUGS (1)
  1. DUPIXENT [Suspect]
     Active Substance: DUPILUMAB
     Indication: DERMATITIS ATOPIC
     Dosage: 300 MG, QOW/1 SYRINGE UNDER THE SKIN
     Dates: start: 20190418

REACTIONS (8)
  - Rash erythematous [Unknown]
  - Drug ineffective [Unknown]
  - Condition aggravated [Unknown]
  - Pruritus [Unknown]
  - Injection site reaction [Unknown]
  - Injection site discolouration [Unknown]
  - Injection site scar [Unknown]
  - Burning sensation [Unknown]

NARRATIVE: CASE EVENT DATE: 2019
